FAERS Safety Report 8988036 (Version 2)
Quarter: 2013Q1

REPORT INFORMATION
  Report Type: Spontaneous
  Country: CN (occurrence: CN)
  Receive Date: 20121227
  Receipt Date: 20130102
  Transmission Date: 20140127
  Serious: Yes (Death)
  Sender: FDA-Public Use
  Company Number: CN-PFIZER INC-2012327577

PATIENT
  Age: 23 Year
  Sex: Female

DRUGS (1)
  1. ZAVEDOS [Suspect]
     Indication: ACUTE LEUKAEMIA
     Dosage: 15 MG, DAILY

REACTIONS (4)
  - Disease progression [Fatal]
  - Acute leukaemia [Fatal]
  - Cerebral haemorrhage [Fatal]
  - Acute respiratory failure [Fatal]
